FAERS Safety Report 14282167 (Version 2)
Quarter: 2019Q3

REPORT INFORMATION
  Report Type: Spontaneous
  Country: GB (occurrence: GB)
  Receive Date: 20171213
  Receipt Date: 20190808
  Transmission Date: 20191004
  Serious: Yes (Hospitalization)
  Sender: FDA-Public Use
  Company Number: GB-PFIZER INC-2017527846

PATIENT
  Age: 37 Year
  Sex: Female
  Weight: 52.2 kg

DRUGS (3)
  1. NITROFURANTOIN. [Concomitant]
     Active Substance: NITROFURANTOIN
     Indication: PROPHYLAXIS
     Dosage: 50 MG, 1X/DAY
     Route: 065
     Dates: start: 20160323, end: 20171105
  2. TOFACITINIB CITRATE [Suspect]
     Active Substance: TOFACITINIB CITRATE
     Indication: PSORIATIC ARTHROPATHY
     Dosage: 10 MG, 1X/DAY
     Route: 048
     Dates: start: 20150806, end: 20171105
  3. HYDROXYCHLOROQUINE [Suspect]
     Active Substance: HYDROXYCHLOROQUINE
     Indication: RHEUMATIC DISORDER
     Dosage: 200 MG, 1X/DAY
     Route: 048
     Dates: start: 20160121, end: 20171105

REACTIONS (3)
  - Swelling [Recovering/Resolving]
  - Infection [Recovering/Resolving]
  - Epiglottitis [Recovering/Resolving]

NARRATIVE: CASE EVENT DATE: 20171105
